FAERS Safety Report 5164444-5 (Version None)
Quarter: 2006Q4

REPORT INFORMATION
  Report Type: 
  Country: None (occurrence: None)
  Receive Date: 20061205
  Receipt Date: 20061129
  Transmission Date: 20070319
  Serious: No
  Sender: FDA-Public Use
  Company Number: US-JNJFOC-20061005189

PATIENT
  Sex: Female
  Weight: 76.2 kg

DRUGS (5)
  1. EXTRA STRENGTH TYLENOL [Suspect]
  2. EXTRA STRENGTH TYLENOL [Suspect]
     Indication: PAIN
     Dosage: STARTED WITH 500MG AT A TIME, AND CONTINUED TO INCREASE DOSAGE AND FREQUENCY
  3. HYDROCHLOROTHIAZIDE [Concomitant]
     Indication: HYPERTENSION
  4. SYNTHROID [Concomitant]
     Indication: HYPOTHYROIDISM
  5. VIACTIV CALCIUM [Concomitant]
     Indication: MEDICAL DIET

REACTIONS (1)
  - INTENTIONAL OVERDOSE [None]
